FAERS Safety Report 5836711-0 (Version None)
Quarter: 2008Q3

REPORT INFORMATION
  Report Type: 
  Country: None (occurrence: None)
  Receive Date: 20080807
  Receipt Date: 20080731
  Transmission Date: 20090109
  Serious: Yes (Death)
  Sender: FDA-Public Use
  Company Number: NL-TEVA-175266ISR

PATIENT
  Age: 81 Year
  Sex: Male

DRUGS (3)
  1. AMOXICILLIN AND CLAVULANATE POTASSIUM [Suspect]
     Indication: INFECTION
     Dosage: UNIT DOSE: 1000/200 MG.
     Route: 042
  2. CEFTAZIDIME [Suspect]
     Indication: INFECTION
     Route: 042
  3. FLOXACILLIN SODIUM [Suspect]

REACTIONS (1)
  - EXTRADURAL ABSCESS [None]
